FAERS Safety Report 7947071-3 (Version None)
Quarter: 2011Q4

REPORT INFORMATION
  Report Type: 
  Country: None (occurrence: None)
  Receive Date: 20111129
  Receipt Date: 20110907
  Transmission Date: 20120403
  Serious: No
  Sender: FDA-Public Use
  Company Number: US-ASTRAZENECA-2011SE53658

PATIENT
  Age: 70 Year
  Sex: Female
  Weight: 78.5 kg

DRUGS (1)
  1. VIMOVO [Suspect]
     Route: 048

REACTIONS (4)
  - EYE PAIN [None]
  - PRURITUS [None]
  - LIP SWELLING [None]
  - RASH GENERALISED [None]
